FAERS Safety Report 4269716-4 (Version None)
Quarter: 2004Q1

REPORT INFORMATION
  Report Type: 
  Country: None (occurrence: None)
  Receive Date: 20040112
  Receipt Date: 20040108
  Transmission Date: 20041129
  Serious: Yes (Other)
  Sender: FDA-Public Use
  Company Number: US-JNJFOC-20040101443

PATIENT
  Age: 58 Year
  Sex: Male

DRUGS (1)
  1. SPORANOX [Suspect]
     Indication: SINUSITIS
     Dosage: 200 MG, 2 IN 12 HOUR, ORAL
     Route: 048

REACTIONS (4)
  - COMPUTERISED TOMOGRAM ABNORMAL [None]
  - HAEMOPTYSIS [None]
  - PLEURITIC PAIN [None]
  - PULMONARY OEDEMA [None]
